FAERS Safety Report 14674632 (Version 1)
Quarter: 2018Q1

REPORT INFORMATION
  Report Type: Spontaneous
  Country: JP (occurrence: JP)
  Receive Date: 20180323
  Receipt Date: 20180323
  Transmission Date: 20180509
  Serious: Yes (Hospitalization, Other)
  Sender: FDA-Public Use
  Company Number: JP-OTSUKA-2018_006832

PATIENT
  Age: 69 Year
  Sex: Female
  Weight: 59.3 kg

DRUGS (1)
  1. PLETAAL OD TABLETS 50MG [Suspect]
     Active Substance: CILOSTAZOL
     Indication: CEREBROVASCULAR ACCIDENT PROPHYLAXIS
     Dosage: 50 MG, BID
     Route: 048

REACTIONS (2)
  - IgA nephropathy [Unknown]
  - Tubulointerstitial nephritis [Unknown]
